FAERS Safety Report 19069073 (Version 1)
Quarter: 2021Q1

REPORT INFORMATION
  Report Type: Spontaneous
  Country: BR (occurrence: BR)
  Receive Date: 20210329
  Receipt Date: 20210329
  Transmission Date: 20210420
  Serious: Yes (Other)
  Sender: FDA-Public Use
  Company Number: BR-INCYTE CORPORATION-2020IN013227

PATIENT

DRUGS (1)
  1. JAKAVI [Suspect]
     Active Substance: RUXOLITINIB
     Indication: PRODUCT USED FOR UNKNOWN INDICATION
     Dosage: 25 MG, Q12H (12 / 12HOURS) (MORE THAN 1 YEAR)
     Route: 065

REACTIONS (4)
  - Skin cancer [Unknown]
  - Genital herpes [Unknown]
  - Lymphopenia [Unknown]
  - Anogenital warts [Unknown]

NARRATIVE: CASE EVENT DATE: 201910
